FAERS Safety Report 9316265 (Version 1)
Quarter: 2013Q2

REPORT INFORMATION
  Report Type: Report from Study
  Country: US (occurrence: US)
  Receive Date: 20130530
  Receipt Date: 20130530
  Transmission Date: 20140414
  Serious: Yes (Other)
  Sender: FDA-Public Use
  Company Number: US-ROCHE-1230282

PATIENT
  Age: 52 Year
  Sex: Male

DRUGS (6)
  1. LUCENTIS [Suspect]
     Indication: DIABETIC RETINAL OEDEMA
     Route: 065
  2. ATORVASTATIN [Concomitant]
     Route: 048
  3. GLIMEPIRIDE [Concomitant]
     Indication: DIABETES MELLITUS
     Route: 048
  4. METFORMIN [Concomitant]
     Indication: DIABETES MELLITUS
     Route: 048
  5. LISINOPRIL [Concomitant]
     Indication: HYPERTENSION
     Route: 048
  6. ACULAR LS [Concomitant]
     Route: 047

REACTIONS (2)
  - Cerebrovascular accident [Unknown]
  - Deafness [Unknown]
